FAERS Safety Report 13385937 (Version 2)
Quarter: 2017Q2

REPORT INFORMATION
  Report Type: Spontaneous
  Country: US (occurrence: US)
  Receive Date: 20170330
  Receipt Date: 20170412
  Transmission Date: 20170830
  Serious: Yes (Hospitalization, Other)
  Sender: FDA-Public Use
  Company Number: US-JNJFOC-20170326501

PATIENT
  Sex: Female
  Weight: 19.05 kg

DRUGS (4)
  1. CHILDRENS TYLENOL [Suspect]
     Active Substance: ACETAMINOPHEN
     Route: 048
  2. CHILDRENS TYLENOL [Suspect]
     Active Substance: ACETAMINOPHEN
     Indication: PYREXIA
     Route: 048
  3. CHILDRENS MOTRIN [Suspect]
     Active Substance: IBUPROFEN
     Indication: PYREXIA
     Route: 065
  4. CHILDRENS MOTRIN [Suspect]
     Active Substance: IBUPROFEN
     Indication: TEETHING
     Route: 065

REACTIONS (4)
  - Malaise [Unknown]
  - Adverse event [Unknown]
  - Respiratory disorder [Unknown]
  - Seizure [Unknown]
